FAERS Safety Report 9833113 (Version 2)
Quarter: 2014Q1

REPORT INFORMATION
  Report Type: Spontaneous
  Country: HU (occurrence: HU)
  Receive Date: 20140121
  Receipt Date: 20140301
  Transmission Date: 20141002
  Serious: Yes (Hospitalization)
  Sender: FDA-Public Use
  Company Number: US-ASTRAZENECA-2014SE04074

PATIENT
  Age: 6 Month
  Sex: Female

DRUGS (1)
  1. SYNAGIS [Suspect]
     Indication: ANTIVIRAL PROPHYLAXIS
     Dosage: DOSE WAS GIVEN BASED ON BODY WEIGHT MONTHLY
     Route: 030
     Dates: start: 20131108, end: 20131206

REACTIONS (2)
  - Cough [Unknown]
  - Arrhythmia [Unknown]
